FAERS Safety Report 19841035 (Version 1)
Quarter: 2021Q3

REPORT INFORMATION
  Report Type: Spontaneous
  Country: DE (occurrence: DE)
  Receive Date: 20210916
  Receipt Date: 20210916
  Transmission Date: 20211014
  Serious: Yes (Hospitalization)
  Sender: FDA-Public Use
  Company Number: DE-OTSUKA-2021_032157

PATIENT
  Age: 84 Year
  Sex: Male

DRUGS (4)
  1. VENETOCLAX. [Suspect]
     Active Substance: VENETOCLAX
     Indication: PRODUCT USED FOR UNKNOWN INDICATION
     Dosage: SCHEME
     Route: 065
  2. DECITABINE. [Suspect]
     Active Substance: DECITABINE
     Indication: PRODUCT USED FOR UNKNOWN INDICATION
     Dosage: SCHEME
     Route: 065
  3. LEVOTHYROXINUM NATRICUM [Concomitant]
     Indication: PRODUCT USED FOR UNKNOWN INDICATION
     Dosage: 75 ?G, 1?0?0?0 (75 MCG,1 IN 1 D)
     Route: 065
  4. SIMVASTATIN. [Concomitant]
     Active Substance: SIMVASTATIN
     Indication: PRODUCT USED FOR UNKNOWN INDICATION
     Dosage: 40 MG, 1?0?0?0 (40 MG,1 IN 1 D)
     Route: 065

REACTIONS (9)
  - General physical health deterioration [Unknown]
  - Systemic infection [Unknown]
  - Cough [Unknown]
  - Hypotension [Unknown]
  - Diarrhoea [Unknown]
  - Electrocardiogram abnormal [Unknown]
  - Anaemia [Unknown]
  - Dyspnoea [Unknown]
  - Renal impairment [Unknown]
